FAERS Safety Report 8561797-2 (Version None)
Quarter: 2012Q3

REPORT INFORMATION
  Report Type: 
  Country: None (occurrence: None)
  Receive Date: 20120802
  Receipt Date: 20120717
  Transmission Date: 20120928
  Serious: Yes (Other)
  Sender: FDA-Public Use
  Company Number: CHPA2012US015774

PATIENT
  Age: 77 Year
  Sex: Female

DRUGS (1)
  1. EXCEDRIN EXTRA STRENGTH TABLETS [Suspect]
     Indication: ANTICOAGULANT THERAPY
     Dosage: 1 TO 2 TABLETS ONCE OR TWICE PER DAY
     Route: 048
     Dates: start: 19600101

REACTIONS (10)
  - CATARACT [None]
  - NAEVUS FLAMMEUS [None]
  - PHLEBITIS [None]
  - DRY EYE [None]
  - JOINT SWELLING [None]
  - OEDEMA PERIPHERAL [None]
  - OFF LABEL USE [None]
  - THROMBOSIS [None]
  - PAIN IN EXTREMITY [None]
  - ARTHRALGIA [None]
